FAERS Safety Report 10031472 (Version 1)
Quarter: 2014Q1

REPORT INFORMATION
  Report Type: Spontaneous
  Country: US (occurrence: US)
  Receive Date: 20140324
  Receipt Date: 20140324
  Transmission Date: 20141002
  Serious: Yes (Hospitalization)
  Sender: FDA-Public Use
  Company Number: US-ASTELLAS-2014US002750

PATIENT
  Age: 50 Year
  Sex: Male

DRUGS (2)
  1. PROGRAF [Suspect]
     Indication: RENAL TRANSPLANT
     Dosage: 2 MG, BID
     Route: 048
     Dates: start: 20070205
  2. PROGRAF [Suspect]
     Indication: PANCREAS TRANSPLANT

REACTIONS (2)
  - Off label use [Unknown]
  - Lower limb fracture [Unknown]
